FAERS Safety Report 15402489 (Version 1)
Quarter: 2018Q3

REPORT INFORMATION
  Report Type: Spontaneous
  Country: US (occurrence: US)
  Receive Date: 20180916
  Receipt Date: 20180916
  Transmission Date: 20181010
  Serious: No
  Sender: FDA-Public Use
  Company Number: None

PATIENT
  Age: 22 Year
  Sex: Male
  Weight: 58.5 kg

DRUGS (4)
  1. INVEGA [Suspect]
     Active Substance: PALIPERIDONE
     Indication: BIPOLAR DISORDER
     Dosage: ?          QUANTITY:1 TABLET(S);?
     Route: 048
     Dates: start: 20171003
  2. VALERIAN ROOT [Concomitant]
     Active Substance: VALERIAN
  3. MELATONIN [Concomitant]
     Active Substance: MELATONIN
  4. MAGNESIUM [Concomitant]
     Active Substance: MAGNESIUM

REACTIONS (5)
  - Road traffic accident [None]
  - Loss of employment [None]
  - Serum serotonin decreased [None]
  - Insomnia [None]
  - Somnambulism [None]

NARRATIVE: CASE EVENT DATE: 20180201
